FAERS Safety Report 9070534 (Version 1)
Quarter: 2013Q1

REPORT INFORMATION
  Report Type: Spontaneous
  Country: FR (occurrence: FR)
  Receive Date: 20130215
  Receipt Date: 20130215
  Transmission Date: 20140127
  Serious: Yes (Hospitalization)
  Sender: FDA-Public Use
  Company Number: FR-009507513-1302FRA004022

PATIENT
  Age: 66 Year
  Sex: Male
  Weight: 86 kg

DRUGS (14)
  1. VICTRELIS [Suspect]
     Indication: HEPATITIS C
     Dosage: 800 MG, TID
     Route: 048
     Dates: start: 20120220, end: 20121030
  2. PEGASYS [Suspect]
     Indication: HEPATITIS C
     Dosage: 180 MICROGRAM, QW
     Dates: start: 20120124, end: 20121030
  3. COPEGUS [Suspect]
     Indication: HEPATITIS C
     Dosage: 1200 MG, QD
     Route: 048
     Dates: start: 20120124, end: 20121030
  4. COPEGUS [Suspect]
     Dosage: 800 UNK, UNK
     Dates: end: 20121030
  5. NEORECORMON [Concomitant]
     Indication: ANAEMIA
     Dosage: 30000 DF, QW
     Dates: start: 20120416, end: 20121030
  6. DEXERYL CREAM [Concomitant]
     Indication: DRY SKIN
     Dosage: 2 DF, QD
  7. DIPROSONE [Concomitant]
     Indication: PRURITUS
  8. BICIRKAN [Concomitant]
     Indication: VENOUS INSUFFICIENCY
  9. DAFALGAN [Concomitant]
     Indication: INFLUENZA
     Dosage: UNK
     Dates: start: 20120124, end: 20121030
  10. PULMICORT [Concomitant]
     Indication: COUGH
  11. CARBOCYSTEINE [Concomitant]
     Indication: COUGH
     Dosage: 2 DF, UNK
     Dates: start: 20120516
  12. ZANIDIP [Concomitant]
     Indication: HYPERTENSION
     Dosage: 10 MG, QD
  13. PRAVASTATIN SODIUM [Concomitant]
     Indication: DYSLIPIDAEMIA
     Dosage: 40 MG, QD
  14. REVOLADE [Concomitant]
     Indication: THROMBOCYTOPENIA
     Dosage: 25 MG, QD
     Dates: start: 20120911, end: 20121030

REACTIONS (3)
  - Bacterial sepsis [Recovered/Resolved]
  - Ascites [Not Recovered/Not Resolved]
  - Anaemia [Recovered/Resolved]
